FAERS Safety Report 18988388 (Version 8)
Quarter: 2025Q2

REPORT INFORMATION
  Report Type: Report from Study
  Country: US (occurrence: US)
  Receive Date: 20210309
  Receipt Date: 20250516
  Transmission Date: 20250717
  Serious: Yes (Hospitalization, Other)
  Sender: TAKEDA
  Company Number: US-TAKEDA-US201835218

PATIENT
  Sex: Female

DRUGS (2)
  1. HUMAN IMMUNOGLOBULIN G [Suspect]
     Active Substance: HUMAN IMMUNOGLOBULIN G
     Indication: Primary immunodeficiency syndrome
  2. HUMAN IMMUNOGLOBULIN G [Suspect]
     Active Substance: HUMAN IMMUNOGLOBULIN G
     Dosage: 25 GRAM, MONTHLY

REACTIONS (7)
  - Drug intolerance [Recovered/Resolved]
  - Gallbladder rupture [Unknown]
  - Breast cancer stage I [Unknown]
  - Pulmonary hypertension [Recovered/Resolved]
  - Asthma [Unknown]
  - Benign lymph node neoplasm [Unknown]
  - COVID-19 [Recovered/Resolved]
